FAERS Safety Report 17297093 (Version 1)
Quarter: 2020Q1

REPORT INFORMATION
  Report Type: Spontaneous
  Country: US (occurrence: US)
  Receive Date: 20200121
  Receipt Date: 20200121
  Transmission Date: 20200409
  Serious: No
  Sender: FDA-Public Use
  Company Number: US-JNJFOC-20200114105

PATIENT
  Sex: Male

DRUGS (2)
  1. REMICADE [Suspect]
     Active Substance: INFLIXIMAB
     Indication: PRODUCT USED FOR UNKNOWN INDICATION
     Route: 042
  2. HUMIRA [Suspect]
     Active Substance: ADALIMUMAB
     Indication: CROHN^S DISEASE
     Route: 058
     Dates: start: 20190612

REACTIONS (8)
  - Arthritis [Unknown]
  - Pain in extremity [Unknown]
  - Abdominal pain [Unknown]
  - Initial insomnia [Unknown]
  - Pruritus [Unknown]
  - Anxiety [Unknown]
  - Injection site erythema [Unknown]
  - Rash [Unknown]

NARRATIVE: CASE EVENT DATE: 2019
